FAERS Safety Report 13238603 (Version 1)
Quarter: 2017Q1

REPORT INFORMATION
  Report Type: Spontaneous
  Country: DE (occurrence: DE)
  Receive Date: 20170216
  Receipt Date: 20170216
  Transmission Date: 20170428
  Serious: Yes (Other)
  Sender: FDA-Public Use
  Company Number: DE-ROCHE-1887142

PATIENT
  Age: 54 Year

DRUGS (6)
  1. RANITIDINE. [Concomitant]
     Active Substance: RANITIDINE
     Route: 065
  2. SAQUINAVIR [Suspect]
     Active Substance: SAQUINAVIR
     Indication: HIV INFECTION
     Route: 065
  3. SALICYLIC ACID. [Concomitant]
     Active Substance: SALICYLIC ACID
     Route: 065
  4. RITONAVIR. [Suspect]
     Active Substance: RITONAVIR
     Indication: HIV INFECTION
     Route: 065
  5. ACICLOVIR [Suspect]
     Active Substance: ACYCLOVIR
     Indication: HIV INFECTION
     Route: 048
  6. PYRIMETHAMINE [Concomitant]
     Active Substance: PYRIMETHAMINE
     Route: 065

REACTIONS (1)
  - Acute kidney injury [Recovering/Resolving]
